FAERS Safety Report 9563975 (Version 1)
Quarter: 2013Q3

REPORT INFORMATION
  Report Type: Report from Study
  Country: US (occurrence: US)
  Receive Date: 20130928
  Receipt Date: 20130928
  Transmission Date: 20140515
  Serious: Yes (Other)
  Sender: FDA-Public Use
  Company Number: US-ROCHE-1279709

PATIENT
  Sex: Female
  Weight: 88.08 kg

DRUGS (12)
  1. HERCEPTIN [Suspect]
     Indication: BREAST CANCER
     Route: 065
     Dates: start: 20101202
  2. HERCEPTIN [Suspect]
     Indication: BONE CANCER
  3. FEMARA [Concomitant]
  4. TEGRETOL [Concomitant]
  5. DILANTIN [Concomitant]
  6. TYLENOL [Concomitant]
  7. ATIVAN [Concomitant]
  8. FISH OIL [Concomitant]
  9. TAXOL [Concomitant]
     Dosage: EVERY THREE WEEKS
     Route: 065
     Dates: start: 20101202, end: 20110505
  10. FASLODEX [Concomitant]
  11. DENOSUMAB [Concomitant]
  12. TAMOXIFEN [Concomitant]
     Route: 065
     Dates: end: 2005

REACTIONS (7)
  - Retinal detachment [Unknown]
  - Visual acuity reduced [Unknown]
  - Metastases to bone [Unknown]
  - Metastases to liver [Unknown]
  - Metastases to lung [Unknown]
  - Diarrhoea [Unknown]
  - Anxiety [Unknown]
